FAERS Safety Report 15751110 (Version 1)
Quarter: 2018Q4

REPORT INFORMATION
  Report Type: Spontaneous
  Country: US (occurrence: US)
  Receive Date: 20181221
  Receipt Date: 20181221
  Transmission Date: 20190205
  Serious: No
  Sender: FDA-Public Use
  Company Number: US-THERAPEUTICSMD-2018TMD00148

PATIENT
  Age: 74 Year
  Sex: Female
  Weight: 61.22 kg

DRUGS (3)
  1. UNSPECIFIED ^STATIN^ DRUG [Concomitant]
  2. IMVEXXY [Suspect]
     Active Substance: ESTRADIOL
     Dosage: 10 ?G, 2X/WEEK BEFORE BEDTIME
     Route: 067
     Dates: start: 201808
  3. IMVEXXY [Suspect]
     Active Substance: ESTRADIOL
     Indication: VULVOVAGINAL DRYNESS
     Dosage: 10 ?G, 1X/DAY BEFORE BEDTIME
     Route: 067
     Dates: start: 201807, end: 201808

REACTIONS (5)
  - Off label use [Not Recovered/Not Resolved]
  - Peripheral swelling [Recovering/Resolving]
  - Chromaturia [Recovering/Resolving]
  - Micturition urgency [Recovering/Resolving]
  - Urine odour abnormal [Recovering/Resolving]

NARRATIVE: CASE EVENT DATE: 201807
